FAERS Safety Report 5849637-3 (Version None)
Quarter: 2008Q3

REPORT INFORMATION
  Report Type: 
  Country: None (occurrence: None)
  Receive Date: 20080731
  Receipt Date: 20080407
  Transmission Date: 20090109
  Serious: No
  Sender: FDA-Public Use
  Company Number: US200804001296

PATIENT
  Age: 69 Year
  Sex: Female
  Weight: 79.4 kg

DRUGS (10)
  1. BYETTA [Suspect]
     Indication: TYPE 2 DIABETES MELLITUS
     Dosage: 5 UG, 2/D, SUBCUTANEOUS
     Route: 058
     Dates: start: 20050101
  2. ACTOS /USA/ (PIOGLITAZONE HYDROCHLORIDE) [Concomitant]
  3. BONIVA [Concomitant]
  4. PRAVASTATIN [Concomitant]
  5. METOLAZONE [Concomitant]
  6. NEURONTIN [Concomitant]
  7. BUPROPION HCL [Concomitant]
  8. ATENOLOL [Concomitant]
  9. POTASSIUM CHLORIDE [Concomitant]
  10. VITAMINS NOS (VITAMINS NOS) [Concomitant]

REACTIONS (8)
  - BLOOD GLUCOSE DECREASED [None]
  - CONFUSIONAL STATE [None]
  - DECREASED APPETITE [None]
  - HYPERHIDROSIS [None]
  - MEMORY IMPAIRMENT [None]
  - NAUSEA [None]
  - PSYCHOMOTOR HYPERACTIVITY [None]
  - WEIGHT DECREASED [None]
